FAERS Safety Report 4772368-8 (Version None)
Quarter: 2005Q3

REPORT INFORMATION
  Report Type: 
  Country: None (occurrence: None)
  Receive Date: 20050919
  Receipt Date: 20041208
  Transmission Date: 20060218
  Serious: No
  Sender: FDA-Public Use
  Company Number: US-BRISTOL-MYERS SQUIBB COMPANY-12789145

PATIENT
  Sex: Male

DRUGS (2)
  1. KENALOG-40 [Suspect]
     Indication: ROTATOR CUFF SYNDROME
     Route: 051
     Dates: start: 20041101
  2. INSULIN [Concomitant]

REACTIONS (1)
  - BLOOD GLUCOSE INCREASED [None]
